FAERS Safety Report 16930197 (Version 1)
Quarter: 2019Q4

REPORT INFORMATION
  Report Type: Spontaneous
  Country: AU (occurrence: AU)
  Receive Date: 20191017
  Receipt Date: 20191017
  Transmission Date: 20200122
  Serious: Yes (Hospitalization, Other)
  Sender: FDA-Public Use
  Company Number: AU-MYLANLABS-2019M1098226

PATIENT
  Age: 77 Year
  Sex: Male

DRUGS (4)
  1. PREDNISOLONE. [Suspect]
     Active Substance: PREDNISOLONE
     Indication: TUBULOINTERSTITIAL NEPHRITIS
     Dosage: 50 MILLIGRAM, QD
     Route: 065
  2. VANCOMYCIN [Suspect]
     Active Substance: VANCOMYCIN
     Indication: ARTHRITIS INFECTIVE
  3. VANCOMYCIN [Suspect]
     Active Substance: VANCOMYCIN
     Indication: DEVICE RELATED INFECTION
  4. VANCOMYCIN [Suspect]
     Active Substance: VANCOMYCIN
     Indication: EVIDENCE BASED TREATMENT
     Route: 042

REACTIONS (7)
  - Drug reaction with eosinophilia and systemic symptoms [Recovering/Resolving]
  - Cytomegalovirus colitis [Recovered/Resolved]
  - Tubulointerstitial nephritis [Recovering/Resolving]
  - Bacterial infection [Unknown]
  - Cytomegalovirus infection [Recovered/Resolved]
  - Anuria [Recovering/Resolving]
  - Acute kidney injury [Recovering/Resolving]
